FAERS Safety Report 16053373 (Version 4)
Quarter: 2019Q2

REPORT INFORMATION
  Report Type: Spontaneous
  Country: JP (occurrence: JP)
  Receive Date: 20190308
  Receipt Date: 20190610
  Transmission Date: 20190711
  Serious: Yes (Other)
  Sender: FDA-Public Use
  Company Number: JP-ALLERGAN-1909397US

PATIENT
  Sex: Male

DRUGS (2)
  1. BOTOX [Suspect]
     Active Substance: ONABOTULINUMTOXINA
     Indication: MUSCLE SPASTICITY
     Dosage: UNK, SINGLE
     Route: 030
     Dates: start: 20190107, end: 20190107
  2. BOTOX [Suspect]
     Active Substance: ONABOTULINUMTOXINA
     Dosage: UNK, SINGLE
     Route: 030
     Dates: start: 2013, end: 2013

REACTIONS (8)
  - Taste disorder [Unknown]
  - Muscular weakness [Unknown]
  - Therapeutic product effect decreased [Unknown]
  - Decreased appetite [Unknown]
  - Cholecystectomy [Unknown]
  - Pain [Unknown]
  - Fatigue [Unknown]
  - Musculoskeletal stiffness [Unknown]

NARRATIVE: CASE EVENT DATE: 2015
